FAERS Safety Report 5105650-5 (Version None)
Quarter: 2006Q3

REPORT INFORMATION
  Report Type: 
  Country: None (occurrence: None)
  Receive Date: 20060915
  Receipt Date: 20060911
  Transmission Date: 20061208
  Serious: Yes (Hospitalization)
  Sender: FDA-Public Use
  Company Number: FR-AVENTIS-200613133FR

PATIENT
  Age: 40 Year
  Sex: Female

DRUGS (3)
  1. LOVENOX [Suspect]
     Route: 058
     Dates: start: 20060728, end: 20060815
  2. DI-HYDAN [Suspect]
     Route: 048
     Dates: start: 20060728, end: 20060815
  3. PARLODEL [Concomitant]
     Route: 048
     Dates: start: 20060727

REACTIONS (3)
  - NEUTROPENIA [None]
  - TREATMENT NONCOMPLIANCE [None]
  - WHITE BLOOD CELL COUNT DECREASED [None]
